FAERS Safety Report 5465277-2 (Version None)
Quarter: 2007Q3

REPORT INFORMATION
  Report Type: 
  Country: None (occurrence: None)
  Receive Date: 20070924
  Receipt Date: 20070920
  Transmission Date: 20080115
  Serious: Yes (Life-Threatening, Hospitalization)
  Sender: FDA-Public Use
  Company Number: PHRM2007FR02230

PATIENT
  Age: 73 Year
  Sex: Female

DRUGS (6)
  1. GLUCOVANCE [Concomitant]
  2. IPERTEN [Concomitant]
  3. INIPOMP [Concomitant]
  4. ANAFRANIL [Concomitant]
  5. KALEORID [Concomitant]
     Indication: BLOOD POTASSIUM ABNORMAL
  6. COTAREG [Suspect]
     Indication: HYPERTENSION
     Dosage: 1 DF, QD
     Route: 048
     Dates: start: 20020101, end: 20070804

REACTIONS (3)
  - BLOOD GLUCOSE INCREASED [None]
  - HYPOKALAEMIA [None]
  - MALAISE [None]
